FAERS Safety Report 6599479-9 (Version None)
Quarter: 2010Q1

REPORT INFORMATION
  Report Type: 
  Country: None (occurrence: None)
  Receive Date: 20100212
  Receipt Date: 20100115
  Transmission Date: 20100710
  Serious: No
  Sender: FDA-Public Use
  Company Number: 2010-00056

PATIENT
  Age: 59 Year
  Sex: Male
  Weight: 81.6475 kg

DRUGS (2)
  1. ALLERGY RELIEF GEL SWABS [Suspect]
     Dosage: QID, 9 DAYS
     Dates: start: 20090501, end: 20090501
  2. OMEPRAZOLE [Concomitant]

REACTIONS (2)
  - AGEUSIA [None]
  - ANOSMIA [None]
